FAERS Safety Report 20016425 (Version 1)
Quarter: 2021Q4

REPORT INFORMATION
  Report Type: Spontaneous
  Country: US (occurrence: None)
  Receive Date: 20211104
  Receipt Date: 20211104
  Transmission Date: 20220303
  Serious: Yes (Hospitalization)
  Sender: FDA-Public Use
  Company Number: None

PATIENT
  Age: 22 Year
  Sex: Male

DRUGS (10)
  1. BRONCHITOL [Suspect]
     Active Substance: MANNITOL
     Dosage: FREQUENCY : TWICE A DAY;?
     Route: 055
     Dates: start: 20210702
  2. ALBUTEROL TAB [Concomitant]
  3. ALBUTEROL SULFATE [Concomitant]
     Active Substance: ALBUTEROL SULFATE
  4. CREON CAP [Concomitant]
  5. MIRALAX POW [Concomitant]
  6. PREDNISONE [Concomitant]
     Active Substance: PREDNISONE
  7. PULMOZYME SOL [Concomitant]
  8. TRIKAFTA [Concomitant]
     Active Substance: ELEXACAFTOR\IVACAFTOR\TEZACAFTOR
  9. VITAMIN A CAP [Concomitant]
  10. VITAMIN D3 CAP [Concomitant]

REACTIONS (2)
  - Infective pulmonary exacerbation of cystic fibrosis [None]
  - Product distribution issue [None]

NARRATIVE: CASE EVENT DATE: 20211104
